FAERS Safety Report 9953351 (Version 1)
Quarter: 2014Q1

REPORT INFORMATION
  Report Type: Spontaneous
  Country: US (occurrence: US)
  Receive Date: 20140304
  Receipt Date: 20140304
  Transmission Date: 20141002
  Serious: No
  Sender: FDA-Public Use
  Company Number: US-ABBVIE-13P-163-1074211-00

PATIENT
  Age: 62 Year
  Sex: Female
  Weight: 99.88 kg

DRUGS (6)
  1. HUMIRA [Suspect]
     Indication: RHEUMATOID ARTHRITIS
     Route: 058
     Dates: start: 2012
  2. LEVOTHYROXINE [Concomitant]
     Indication: THYROID DISORDER
     Route: 048
  3. UNKNOWN MEDICATION [Concomitant]
     Indication: BLOOD CHOLESTEROL
     Route: 048
  4. PAIN MEDICATION [Concomitant]
     Indication: INTERVERTEBRAL DISC PROTRUSION
     Route: 048
  5. TWO UNKNOWN MEDICATIONS [Concomitant]
     Indication: BLOOD PRESSURE
  6. TWO UNKNOWN MEDICATIONS [Concomitant]
     Indication: BLOOD PRESSURE

REACTIONS (2)
  - Laceration [Not Recovered/Not Resolved]
  - Breakthrough pain [Not Recovered/Not Resolved]
